FAERS Safety Report 13783564 (Version 2)
Quarter: 2017Q3

REPORT INFORMATION
  Report Type: Spontaneous
  Country: KR (occurrence: KR)
  Receive Date: 20170724
  Receipt Date: 20170925
  Transmission Date: 20171127
  Serious: Yes (Hospitalization)
  Sender: FDA-Public Use
  Company Number: KR-MYLANLABS-2017M1043723

PATIENT
  Age: 47 Year
  Sex: Male

DRUGS (1)
  1. TENOFOVIR [Suspect]
     Active Substance: TENOFOVIR
     Indication: CHRONIC HEPATITIS B
     Dosage: 300MG
     Route: 065
     Dates: start: 20121205, end: 20141130

REACTIONS (2)
  - Fanconi syndrome acquired [Recovering/Resolving]
  - Osteoporosis [Recovering/Resolving]
